FAERS Safety Report 24978438 (Version 2)
Quarter: 2025Q1

REPORT INFORMATION
  Report Type: Spontaneous
  Country: US (occurrence: US)
  Receive Date: 20250217
  Receipt Date: 20250221
  Transmission Date: 20250408
  Serious: No
  Sender: JOHNSON AND JOHNSON
  Company Number: US-JNJFOC-20250239296

PATIENT
  Age: 5 Decade
  Sex: Female

DRUGS (1)
  1. SPRAVATO [Suspect]
     Active Substance: ESKETAMINE
     Indication: Depression
     Route: 045
     Dates: start: 20240601

REACTIONS (4)
  - Affect lability [Recovered/Resolved]
  - Hyperaesthesia [Recovered/Resolved]
  - Dissociation [Recovered/Resolved]
  - Taste disorder [Recovered/Resolved]
